FAERS Safety Report 23813761 (Version 3)
Quarter: 2024Q2

REPORT INFORMATION
  Report Type: Report from Study
  Country: CA (occurrence: CA)
  Receive Date: 20240503
  Receipt Date: 20240514
  Transmission Date: 20240716
  Serious: Yes (Hospitalization, Other)
  Sender: FDA-Public Use
  Company Number: CA-ARGENX-2024-ARGX-CA000625

PATIENT

DRUGS (9)
  1. VYVGART [Suspect]
     Active Substance: EFGARTIGIMOD ALFA-FCAB
     Indication: Myasthenia gravis
     Dosage: 700 MG
     Route: 042
     Dates: start: 20231206
  2. VYVGART [Suspect]
     Active Substance: EFGARTIGIMOD ALFA-FCAB
     Dosage: 760 MG
     Route: 065
  3. VYVGART [Suspect]
     Active Substance: EFGARTIGIMOD ALFA-FCAB
     Dosage: 770 MG
     Route: 065
  4. VYVGART [Suspect]
     Active Substance: EFGARTIGIMOD ALFA-FCAB
     Dosage: 780 MG
     Route: 065
  5. VYVGART [Suspect]
     Active Substance: EFGARTIGIMOD ALFA-FCAB
     Dosage: 820 MG
     Route: 065
  6. VYVGART [Suspect]
     Active Substance: EFGARTIGIMOD ALFA-FCAB
     Dosage: 825 MG
     Route: 065
  7. VYVGART [Suspect]
     Active Substance: EFGARTIGIMOD ALFA-FCAB
     Dosage: 835 MG
     Route: 065
  8. VYVGART [Suspect]
     Active Substance: EFGARTIGIMOD ALFA-FCAB
     Dosage: 840 MG (SLIGHT DOSE INCREASE)
     Route: 065
  9. VYVGART [Suspect]
     Active Substance: EFGARTIGIMOD ALFA-FCAB
     Dosage: 815 MG (SLIGHTLY REDUCED)
     Route: 042
     Dates: start: 20240501

REACTIONS (11)
  - Myasthenia gravis [Recovering/Resolving]
  - Myasthenia gravis [Unknown]
  - Weight increased [Recovering/Resolving]
  - Therapy change [Unknown]
  - Asthenia [Unknown]
  - Dysphagia [Unknown]
  - Eyelid ptosis [Unknown]
  - Muscle strength abnormal [Unknown]
  - Exercise tolerance decreased [Unknown]
  - Muscle spasms [Unknown]
  - Fatigue [Unknown]

NARRATIVE: CASE EVENT DATE: 20240124
